FAERS Safety Report 15062225 (Version 1)
Quarter: 2018Q2

REPORT INFORMATION
  Report Type: Spontaneous
  Country: US (occurrence: US)
  Receive Date: 20180605
  Receipt Date: 20180605
  Transmission Date: 20180711
  Serious: Yes (Hospitalization)
  Sender: FDA-Public Use
  Company Number: None

PATIENT
  Age: 56 Year
  Sex: Female

DRUGS (14)
  1. ELIQUIS [Concomitant]
     Active Substance: APIXABAN
  2. FOLIC ACID. [Concomitant]
     Active Substance: FOLIC ACID
  3. CHLOROTHALID [Concomitant]
  4. SYNTHROID [Concomitant]
     Active Substance: LEVOTHYROXINE SODIUM
  5. METHOTREXATE. [Concomitant]
     Active Substance: METHOTREXATE
  6. PLAQUENIL [Concomitant]
     Active Substance: HYDROXYCHLOROQUINE SULFATE
  7. FLUCONAZOLE. [Concomitant]
     Active Substance: FLUCONAZOLE
  8. HUMIRA [Suspect]
     Active Substance: ADALIMUMAB
     Indication: RHEUMATOID ARTHRITIS
     Route: 058
     Dates: start: 20160627
  9. CALCIUM [Concomitant]
     Active Substance: CALCIUM
  10. FEMHRT [Concomitant]
     Active Substance: ETHINYL ESTRADIOL\NORETHINDRONE ACETATE
  11. RESTASIS [Concomitant]
     Active Substance: CYCLOSPORINE
  12. VITAMIN D3 [Concomitant]
     Active Substance: CHOLECALCIFEROL
  13. PREDNISONE. [Concomitant]
     Active Substance: PREDNISONE
  14. FAMOTIDINE. [Concomitant]
     Active Substance: FAMOTIDINE

REACTIONS (1)
  - Infection [None]

NARRATIVE: CASE EVENT DATE: 20180509
